FAERS Safety Report 5115141-3 (Version None)
Quarter: 2006Q3

REPORT INFORMATION
  Report Type: 
  Country: None (occurrence: None)
  Receive Date: 20060926
  Receipt Date: 20060918
  Transmission Date: 20061208
  Serious: Yes (Death)
  Sender: FDA-Public Use
  Company Number: US-SANOFI-SYNTHELABO-A03200605829

PATIENT
  Sex: Female
  Weight: 56.69 kg

DRUGS (1)
  1. PLAVIX [Suspect]
     Indication: CARDIAC FAILURE
     Route: 048

REACTIONS (1)
  - CARDIAC ARREST [None]
